FAERS Safety Report 25841151 (Version 1)
Quarter: 2025Q3

REPORT INFORMATION
  Report Type: Spontaneous
  Country: EU (occurrence: EU)
  Receive Date: 20250924
  Receipt Date: 20250924
  Transmission Date: 20251020
  Serious: Yes (Hospitalization, Other)
  Sender: ARGENX BVBA
  Company Number: EU-ARGENX-2025-ARGX-PL012705

PATIENT

DRUGS (1)
  1. VYVGART [Suspect]
     Active Substance: EFGARTIGIMOD ALFA-FCAB
     Indication: Myasthenia gravis
     Route: 065

REACTIONS (3)
  - Dysphagia [Recovering/Resolving]
  - Condition aggravated [Recovering/Resolving]
  - Medical device site abscess [Recovering/Resolving]
